FAERS Safety Report 10180897 (Version 1)
Quarter: 2014Q2

REPORT INFORMATION
  Report Type: Spontaneous
  Country: US (occurrence: US)
  Receive Date: 20140519
  Receipt Date: 20140519
  Transmission Date: 20141212
  Serious: No
  Sender: FDA-Public Use
  Company Number: US-AMGEN INC.-USASP2014009577

PATIENT
  Age: 57 Year
  Sex: Female

DRUGS (2)
  1. PROLIA [Suspect]
     Indication: OSTEOPOROSIS POSTMENOPAUSAL
     Dosage: UNK
     Route: 065
     Dates: start: 2013
  2. PROLIA [Suspect]
     Dosage: UNK
     Route: 065
     Dates: start: 201312

REACTIONS (2)
  - Dizziness [Recovering/Resolving]
  - Vertigo [Recovering/Resolving]
